FAERS Safety Report 26203733 (Version 1)
Quarter: 2025Q4

REPORT INFORMATION
  Report Type: Spontaneous
  Country: TH (occurrence: TH)
  Receive Date: 20251226
  Receipt Date: 20251226
  Transmission Date: 20260117
  Serious: Yes (Other)
  Sender: PURDUE
  Company Number: TH-NAPPMUNDI-GBR-2025-0131531

PATIENT

DRUGS (3)
  1. MORPHINE SULFATE [Suspect]
     Active Substance: MORPHINE SULFATE
     Indication: Pain
     Dosage: 0.1 MG/KG, EVERY 4-6 H AS NEEDED
     Route: 042
  2. MORPHINE SULFATE [Suspect]
     Active Substance: MORPHINE SULFATE
     Indication: Pain
     Dosage: 0.1 MG/KG, EVERY 4-6 H AS NEEDED
     Route: 042
  3. MEPERIDINE [Suspect]
     Active Substance: MEPERIDINE
     Indication: Pain
     Dosage: 1 MG/KG, EVERY 4-6 H AS NEEDED
     Route: 042

REACTIONS (1)
  - Embolism [Unknown]
